FAERS Safety Report 12927115 (Version 1)
Quarter: 2016Q4

REPORT INFORMATION
  Report Type: Spontaneous
  Country: US (occurrence: US)
  Receive Date: 20161109
  Receipt Date: 20161109
  Transmission Date: 20170207
  Serious: Yes (Hospitalization, Other)
  Sender: FDA-Public Use
  Company Number: US-LUNDBECK-DKLU2022103

PATIENT
  Age: 3 Year
  Sex: Male

DRUGS (16)
  1. ONFI [Suspect]
     Active Substance: CLOBAZAM
     Route: 048
     Dates: start: 20131126
  2. ONFI [Suspect]
     Active Substance: CLOBAZAM
     Route: 065
     Dates: start: 20130530
  3. ONFI [Suspect]
     Active Substance: CLOBAZAM
     Route: 048
     Dates: start: 20130627
  4. ONFI [Suspect]
     Active Substance: CLOBAZAM
     Route: 048
     Dates: start: 20140812
  5. CLONAZEPAM. [Concomitant]
     Active Substance: CLONAZEPAM
     Indication: PRODUCT USED FOR UNKNOWN INDICATION
     Route: 065
  6. ONFI [Suspect]
     Active Substance: CLOBAZAM
     Route: 065
  7. ONFI [Suspect]
     Active Substance: CLOBAZAM
     Route: 048
     Dates: start: 20130530
  8. ONFI [Suspect]
     Active Substance: CLOBAZAM
     Route: 048
     Dates: start: 20131028
  9. ONFI [Suspect]
     Active Substance: CLOBAZAM
     Indication: SEIZURE
     Route: 048
     Dates: start: 201210
  10. ONFI [Suspect]
     Active Substance: CLOBAZAM
     Dosage: DOSE INCREASED TOWARDS GOAL OF 3 ML BID
     Route: 048
     Dates: start: 20140612
  11. ONFI [Suspect]
     Active Substance: CLOBAZAM
     Indication: SEIZURE
     Route: 048
     Dates: start: 201210
  12. TOPAMAX [Concomitant]
     Active Substance: TOPIRAMATE
     Indication: PRODUCT USED FOR UNKNOWN INDICATION
     Route: 065
  13. ONFI [Suspect]
     Active Substance: CLOBAZAM
     Route: 048
     Dates: start: 20131126
  14. ONFI [Suspect]
     Active Substance: CLOBAZAM
     Route: 065
  15. KEPPRA [Concomitant]
     Active Substance: LEVETIRACETAM
     Indication: PRODUCT USED FOR UNKNOWN INDICATION
     Route: 065
  16. ONFI [Suspect]
     Active Substance: CLOBAZAM
     Route: 065
     Dates: start: 2013

REACTIONS (4)
  - Petit mal epilepsy [Unknown]
  - Dehydration [Unknown]
  - Somnolence [Recovering/Resolving]
  - Seizure [Unknown]

NARRATIVE: CASE EVENT DATE: 20130627
